FAERS Safety Report 5340710-5 (Version None)
Quarter: 2007Q2

REPORT INFORMATION
  Report Type: 
  Country: None (occurrence: None)
  Receive Date: 20070405
  Receipt Date: 20061130
  Transmission Date: 20071010
  Serious: No
  Sender: FDA-Public Use
  Company Number: US200612000636

PATIENT
  Age: 42 Year
  Sex: Female

DRUGS (2)
  1. CYMBALTA [Suspect]
     Indication: ARTHRALGIA
     Dosage: SEE IMAGE
     Dates: start: 20061101, end: 20061101
  2. CYMBALTA [Suspect]
     Indication: ARTHRALGIA
     Dosage: SEE IMAGE
     Dates: start: 20061101, end: 20061129

REACTIONS (2)
  - HEART RATE INCREASED [None]
  - PRESCRIBED OVERDOSE [None]
